FAERS Safety Report 5741092-7 (Version None)
Quarter: 2008Q2

REPORT INFORMATION
  Report Type: 
  Country: None (occurrence: None)
  Receive Date: 20080514
  Receipt Date: 20080507
  Transmission Date: 20081010
  Serious: Yes (Other)
  Sender: FDA-Public Use
  Company Number: CHPA2008US07627

PATIENT
  Age: 42 Year
  Sex: Male

DRUGS (1)
  1. DESENEX PRESCRIPTION STRENGTH SPRAY                    LIQUID SPRAY [Suspect]
     Indication: TINEA PEDIS
     Dosage: QD, TOPICAL
     Route: 061
     Dates: start: 20080428, end: 20080428

REACTIONS (3)
  - APPLICATION SITE BURN [None]
  - APPLICATION SITE VESICLES [None]
  - BURNS SECOND DEGREE [None]
